FAERS Safety Report 18099634 (Version 2)
Quarter: 2020Q3

REPORT INFORMATION
  Report Type: Spontaneous
  Country: GB (occurrence: GB)
  Receive Date: 20200731
  Receipt Date: 20200804
  Transmission Date: 20201103
  Serious: Yes (Disabling, Other)
  Sender: FDA-Public Use
  Company Number: GB-009507513-2007GBR010237

PATIENT
  Age: 30 Year
  Sex: Female
  Weight: 73.02 kg

DRUGS (6)
  1. EUMOVATE [Suspect]
     Active Substance: CLOBETASONE BUTYRATE
     Dosage: UNK
  2. ELOCON [Suspect]
     Active Substance: MOMETASONE FUROATE
     Indication: ECZEMA
     Dosage: APPLIED ONCE IN MORNING FOR TWO WEEKS IF FLARED. THEN ONCE EVERY MONTH OR SO TO KEEP FLARE DOWN
     Route: 061
     Dates: start: 20180119, end: 20200602
  3. FEXOFENADINE HYDROCHLORIDE. [Concomitant]
     Active Substance: FEXOFENADINE HYDROCHLORIDE
     Dosage: UNK
  4. BETNOVATE [Suspect]
     Active Substance: BETAMETHASONE
     Dosage: UNK
  5. PROTOPIC [Suspect]
     Active Substance: TACROLIMUS
     Indication: ECZEMA
     Dosage: APPLIED AT NIGHT FOR 2 WEEKS DURING FLARE AND ONCE EVERY MONTH OR SO TO KEEP FLARE DOWN
     Route: 061
     Dates: start: 20180119, end: 20200602
  6. ALBUTEROL SULFATE. [Concomitant]
     Active Substance: ALBUTEROL SULFATE
     Dosage: SALBUTAMOL SULFATE

REACTIONS (19)
  - Steroid withdrawal syndrome [Not Recovered/Not Resolved]
  - Skin burning sensation [Not Recovered/Not Resolved]
  - Pruritus [Not Recovered/Not Resolved]
  - Lymphadenopathy [Unknown]
  - Chills [Not Recovered/Not Resolved]
  - Erythema [Not Recovered/Not Resolved]
  - Alopecia [Not Recovered/Not Resolved]
  - Skin exfoliation [Unknown]
  - Skin weeping [Unknown]
  - Tremor [Not Recovered/Not Resolved]
  - Insomnia [Not Recovered/Not Resolved]
  - Rash [Not Recovered/Not Resolved]
  - Skin tightness [Not Recovered/Not Resolved]
  - Skin hypertrophy [Not Recovered/Not Resolved]
  - Fatigue [Not Recovered/Not Resolved]
  - Neuralgia [Not Recovered/Not Resolved]
  - Swelling face [Not Recovered/Not Resolved]
  - Skin wrinkling [Unknown]
  - Peripheral swelling [Not Recovered/Not Resolved]

NARRATIVE: CASE EVENT DATE: 20190620
